FAERS Safety Report 7751645-2 (Version None)
Quarter: 2011Q3

REPORT INFORMATION
  Report Type: 
  Country: None (occurrence: None)
  Receive Date: 20110914
  Receipt Date: 20110902
  Transmission Date: 20111222
  Serious: Yes (Other)
  Sender: FDA-Public Use
  Company Number: US-RB-032102-11

PATIENT
  Age: 24 Hour
  Sex: Male

DRUGS (1)
  1. SUBOXONE [Suspect]
     Indication: PRODUCT USED FOR UNKNOWN INDICATION
     Route: 064

REACTIONS (4)
  - MATERNAL EXPOSURE DURING PREGNANCY [None]
  - SCREAMING [None]
  - WEIGHT DECREASED [None]
  - RESTLESSNESS [None]
